FAERS Safety Report 6191903-9 (Version None)
Quarter: 2009Q2

REPORT INFORMATION
  Report Type: 
  Country: None (occurrence: None)
  Receive Date: 20090515
  Receipt Date: 20090512
  Transmission Date: 20091009
  Serious: Yes (Other)
  Sender: FDA-Public Use
  Company Number: US-WYE-H09311609

PATIENT
  Age: 14 Year
  Sex: Male
  Weight: 63.56 kg

DRUGS (1)
  1. ROBITUSSIN COUGH AND CHEST CONGESTION DM [Suspect]
     Indication: EUPHORIC MOOD
     Dosage: ONE BOTTLE
     Route: 048
     Dates: start: 20090510, end: 20090510

REACTIONS (4)
  - BLADDER DISORDER [None]
  - DRUG ABUSE [None]
  - DYSURIA [None]
  - OVERDOSE [None]
